FAERS Safety Report 5069268-5 (Version None)
Quarter: 2006Q3

REPORT INFORMATION
  Report Type: 
  Country: None (occurrence: None)
  Receive Date: 20060803
  Receipt Date: 20060626
  Transmission Date: 20061208
  Serious: Yes (Life-Threatening)
  Sender: FDA-Public Use
  Company Number: JP-BAYER-200612628GDS

PATIENT
  Age: 62 Year
  Sex: Female
  Weight: 37 kg

DRUGS (8)
  1. ASPIRIN [Suspect]
     Indication: ATRIAL FIBRILLATION
     Route: 048
     Dates: start: 20030222, end: 20030807
  2. DIGOXIN [Suspect]
     Indication: ATRIAL FIBRILLATION
     Route: 048
     Dates: start: 20030222, end: 20030916
  3. EPOGEN [Suspect]
     Indication: NEPHROGENIC ANAEMIA
     Route: 042
     Dates: start: 19790101
  4. ASPENON [Concomitant]
     Indication: DRUG USE FOR UNKNOWN INDICATION
     Route: 048
     Dates: start: 20030217, end: 20030227
  5. ALLOPURINOL [Concomitant]
     Indication: HYPERURICAEMIA
     Route: 048
     Dates: end: 20030705
  6. CALTAN (PERCIPITATED CALCIUM CARBONATE) [Concomitant]
     Indication: HYPERPHOSPHATAEMIA
     Route: 048
  7. KALIMATE [Concomitant]
     Indication: HYPERKALAEMIA
     Route: 048
  8. TOUGHMAC E [Concomitant]
     Indication: DRUG USE FOR UNKNOWN INDICATION
     Route: 048
     Dates: end: 20030612

REACTIONS (1)
  - APLASIA PURE RED CELL [None]
